FAERS Safety Report 7013666-7 (Version None)
Quarter: 2010Q3

REPORT INFORMATION
  Report Type: 
  Country: None (occurrence: None)
  Receive Date: 20100924
  Receipt Date: 20100914
  Transmission Date: 20110219
  Serious: Yes (Other)
  Sender: FDA-Public Use
  Company Number: FR-ELI_LILLY_AND_COMPANY-FR201004007628

PATIENT
  Age: 66 Year
  Sex: Male
  Weight: 115 kg

DRUGS (10)
  1. ALIMTA [Suspect]
     Indication: NON-SMALL CELL LUNG CANCER
     Dosage: 500 MG/M2, EVERY 3WEEKS
     Route: 042
     Dates: start: 20100208, end: 20100322
  2. FOLIC ACID W/VITAMIN B12 [Concomitant]
     Indication: VITAMIN SUPPLEMENTATION
     Dosage: UNK, UNKNOWN
     Route: 065
  3. STEROID ANTIBACTERIALS [Concomitant]
     Indication: PROPHYLAXIS
     Dosage: UNK, UNKNOWN
     Route: 065
  4. ROXITHROMYCIN [Concomitant]
     Dosage: UNK, UNKNOWN
     Route: 065
  5. PYOSTACINE [Concomitant]
     Dosage: UNK, UNKNOWN
     Route: 065
  6. ACEBUTOLOL [Concomitant]
     Dosage: 400 MG, UNK
     Route: 048
  7. TAHOR [Concomitant]
     Dosage: 40 MG, UNK
     Route: 048
  8. CLOPIDOGREL [Concomitant]
     Dosage: 1 TABLET  UNK, UNK
     Route: 048
  9. SPIRIVA [Concomitant]
     Route: 055
  10. SYMBICORT [Concomitant]
     Route: 055

REACTIONS (2)
  - ANAEMIA [None]
  - OEDEMA [None]
